FAERS Safety Report 6549287-X (Version None)
Quarter: 2010Q1

REPORT INFORMATION
  Report Type: 
  Country: None (occurrence: None)
  Receive Date: 20100125
  Receipt Date: 20100120
  Transmission Date: 20100710
  Serious: Yes (Life-Threatening, Hospitalization)
  Sender: FDA-Public Use
  Company Number: DE-ASTRAZENECA-2010SE02708

PATIENT
  Age: 60 Year
  Sex: Female

DRUGS (6)
  1. SEROQUEL [Suspect]
     Route: 048
     Dates: start: 20080506, end: 20080620
  2. CIPRAMIL [Interacting]
     Dates: start: 20080506
  3. QUILONUM [Interacting]
     Dates: start: 20080506
  4. LYOGEN [Interacting]
     Dates: start: 20080506
  5. LEPONEX [Interacting]
     Dates: start: 20080621
  6. LEVOTHYROXINE SODIUM [Concomitant]
     Dates: start: 20080506

REACTIONS (4)
  - ASPIRATION [None]
  - CHOKING [None]
  - DRUG INTERACTION [None]
  - RESPIRATORY ARREST [None]
